FAERS Safety Report 12067307 (Version 1)
Quarter: 2016Q1

REPORT INFORMATION
  Report Type: Spontaneous
  Country: US (occurrence: US)
  Receive Date: 20160211
  Receipt Date: 20160211
  Transmission Date: 20160526
  Serious: Yes (Other)
  Sender: FDA-Public Use
  Company Number: US-BEH-2016058705

PATIENT
  Sex: Male

DRUGS (3)
  1. INTRAVENOUS IMMUNOGLOBULIN [Suspect]
     Active Substance: HUMAN IMMUNOGLOBULIN G
     Indication: ERYTHROBLASTOSIS FOETALIS
     Route: 042
  2. GENTAMICIN. [Suspect]
     Active Substance: GENTAMICIN
  3. AMPICILLIN [Suspect]
     Active Substance: AMPICILLIN

REACTIONS (2)
  - Anaemia [Unknown]
  - Drug ineffective for unapproved indication [Unknown]
